FAERS Safety Report 8574611-6 (Version None)
Quarter: 2012Q3

REPORT INFORMATION
  Report Type: 
  Country: None (occurrence: None)
  Receive Date: 20120807
  Receipt Date: 20120726
  Transmission Date: 20120928
  Serious: Yes (Other)
  Sender: FDA-Public Use
  Company Number: AR-AMGEN-ARGSP2011040981

PATIENT
  Age: 55 Year
  Sex: Female
  Weight: 58 kg

DRUGS (1)
  1. ENBREL [Suspect]
     Indication: RHEUMATOID ARTHRITIS
     Dosage: 50 MG, WEEKLY
     Route: 058
     Dates: start: 20090916, end: 20120301

REACTIONS (5)
  - HIP SURGERY [None]
  - DRY SKIN [None]
  - SKIN INFECTION [None]
  - DEVICE DISLOCATION [None]
  - RHEUMATOID ARTHRITIS [None]
